FAERS Safety Report 5875507-0 (Version None)
Quarter: 2008Q3

REPORT INFORMATION
  Report Type: 
  Country: None (occurrence: None)
  Receive Date: 20080909
  Receipt Date: 20080904
  Transmission Date: 20090109
  Serious: Yes (Death, Life-Threatening)
  Sender: FDA-Public Use
  Company Number: JP-AVENTIS-200812668JP

PATIENT
  Age: 72 Year
  Sex: Female
  Weight: 46 kg

DRUGS (8)
  1. AMARYL [Suspect]
     Dates: start: 20080512, end: 20080620
  2. AMARYL [Suspect]
     Dosage: DOSE: 2 TABLETS
     Route: 048
     Dates: start: 20080621, end: 20080622
  3. URSO                               /00465701/ [Concomitant]
     Indication: HEPATIC CIRRHOSIS
     Dosage: DOSE: 2 TABLETS
     Route: 048
     Dates: start: 20080411, end: 20080622
  4. ASPARA-CA [Concomitant]
     Indication: HYPOKALAEMIA
     Dosage: DOSE: 1 TABLET
     Route: 048
     Dates: start: 20080526, end: 20080622
  5. LASIX [Concomitant]
     Indication: ASCITES
     Dosage: DOSE: 1 TABLET
     Route: 048
     Dates: start: 20080613, end: 20080622
  6. PURSENNID                          /00571901/ [Concomitant]
     Indication: CONSTIPATION
     Dosage: DOSE: 2 TABLETS
     Route: 048
     Dates: start: 20080411, end: 20080622
  7. LANSOPRAZOLE [Concomitant]
     Indication: GASTRIC ULCER
     Dosage: DOSE: 1 TABLET
     Route: 048
     Dates: start: 20080616, end: 20080622
  8. ALMATOL [Concomitant]
     Indication: ASCITES
     Route: 048
     Dates: start: 20080512, end: 20080620

REACTIONS (4)
  - CONDITION AGGRAVATED [None]
  - HEPATIC CIRRHOSIS [None]
  - HYPOGLYCAEMIC COMA [None]
  - MEDICATION ERROR [None]
